FAERS Safety Report 14249436 (Version 1)
Quarter: 2017Q4

REPORT INFORMATION
  Report Type: Spontaneous
  Country: JP (occurrence: JP)
  Receive Date: 20171204
  Receipt Date: 20171204
  Transmission Date: 20180321
  Serious: Yes (Death, Hospitalization, Other)
  Sender: FDA-Public Use
  Company Number: JP-INGENUS PHARMACEUTICALS, LLC-INF201711-000624

PATIENT
  Age: 54 Year
  Sex: Male
  Weight: 82 kg

DRUGS (13)
  1. IRINOTECAN [Suspect]
     Active Substance: IRINOTECAN
     Indication: METASTASES TO CENTRAL NERVOUS SYSTEM
  2. L-LEUCOVORIN [Suspect]
     Active Substance: LEUCOVORIN
     Indication: RECTAL CANCER
  3. L-LEUCOVORIN [Suspect]
     Active Substance: LEUCOVORIN
     Indication: METASTASES TO LUNG
  4. CETUXIMAB. [Suspect]
     Active Substance: CETUXIMAB
     Indication: RECTAL CANCER
  5. 5-FLUORURACIL [Suspect]
     Active Substance: FLUOROURACIL
     Indication: METASTASES TO LUNG
  6. 5-FLUORURACIL [Suspect]
     Active Substance: FLUOROURACIL
     Indication: RECTAL CANCER
  7. L-LEUCOVORIN [Suspect]
     Active Substance: LEUCOVORIN
     Indication: METASTASES TO CENTRAL NERVOUS SYSTEM
  8. IRINOTECAN [Suspect]
     Active Substance: IRINOTECAN
     Indication: METASTASES TO LUNG
  9. VANCOMYCIN HYDROCHLORIDE. [Concomitant]
     Active Substance: VANCOMYCIN HYDROCHLORIDE
     Indication: PSEUDOMEMBRANOUS COLITIS
     Dosage: 24.4 MG/KG/DAY
     Route: 048
  10. CETUXIMAB. [Suspect]
     Active Substance: CETUXIMAB
     Indication: METASTASES TO LUNG
  11. IRINOTECAN [Suspect]
     Active Substance: IRINOTECAN
     Indication: RECTAL CANCER
  12. CETUXIMAB. [Suspect]
     Active Substance: CETUXIMAB
     Indication: METASTASES TO CENTRAL NERVOUS SYSTEM
  13. 5-FLUORURACIL [Suspect]
     Active Substance: FLUOROURACIL
     Indication: METASTASES TO CENTRAL NERVOUS SYSTEM

REACTIONS (4)
  - Septic shock [Not Recovered/Not Resolved]
  - Multiple organ dysfunction syndrome [Fatal]
  - Neutropenia [Not Recovered/Not Resolved]
  - Colitis [Not Recovered/Not Resolved]
